FAERS Safety Report 5305211-9 (Version None)
Quarter: 2007Q1

REPORT INFORMATION
  Report Type: 
  Country: None (occurrence: None)
  Receive Date: 20070201
  Receipt Date: 20061113
  Transmission Date: 20070707
  Serious: No
  Sender: FDA-Public Use
  Company Number: 2006PV025171

PATIENT
  Age: 64 Year
  Sex: Female
  Weight: 122.4712 kg

DRUGS (5)
  1. BYETTA [Suspect]
     Indication: DIABETES MELLITUS NON-INSULIN-DEPENDENT
     Dosage: SEE IMAGE
     Dates: start: 20060801, end: 20061028
  2. BYETTA [Suspect]
     Indication: DIABETES MELLITUS NON-INSULIN-DEPENDENT
     Dosage: SEE IMAGE
     Dates: start: 20061029
  3. ACTOS [Concomitant]
  4. GLUCOPHAGE [Concomitant]
  5. XANAX [Concomitant]

REACTIONS (4)
  - BLOOD GLUCOSE INCREASED [None]
  - DEPRESSED MOOD [None]
  - INJECTION SITE REACTION [None]
  - NIGHTMARE [None]
